FAERS Safety Report 12225436 (Version 1)
Quarter: 2016Q1

REPORT INFORMATION
  Report Type: Spontaneous
  Country: US (occurrence: None)
  Receive Date: 20160330
  Receipt Date: 20160330
  Transmission Date: 20160526
  Serious: No
  Sender: FDA-Public Use
  Company Number: None

PATIENT
  Age: 53 Year
  Sex: Female
  Weight: 76.2 kg

DRUGS (5)
  1. NARCO [Concomitant]
  2. ADVIL [Concomitant]
     Active Substance: IBUPROFEN
  3. MEGA RED [Concomitant]
  4. COMBIPATCH [Suspect]
     Active Substance: ESTRADIOL\NORETHINDRONE ACETATE
     Indication: MENOPAUSE
     Dosage: 3 PATCH(ES)  APPLIED AS MEDICATED PATCH TO SKIN
     Dates: start: 20140912
  5. ADDERALL [Concomitant]
     Active Substance: AMPHETAMINE ASPARTATE\AMPHETAMINE SULFATE\DEXTROAMPHETAMINE SACCHARATE\DEXTROAMPHETAMINE SULFATE

REACTIONS (4)
  - Hot flush [None]
  - Fatigue [None]
  - Hyperhidrosis [None]
  - Product adhesion issue [None]

NARRATIVE: CASE EVENT DATE: 20160314
